FAERS Safety Report 9428770 (Version 1)
Quarter: 2013Q3

REPORT INFORMATION
  Report Type: Report from Study
  Country: US (occurrence: US)
  Receive Date: 20130730
  Receipt Date: 20130730
  Transmission Date: 20140515
  Serious: No
  Sender: FDA-Public Use
  Company Number: US-ABBOTT-13P-163-1038105-00

PATIENT
  Sex: Female
  Weight: 61.52 kg

DRUGS (1)
  1. NIASPAN (COATED) [Suspect]
     Indication: HIGH DENSITY LIPOPROTEIN INCREASED
     Dosage: 1000MG DAILY
     Dates: start: 201212

REACTIONS (3)
  - Headache [Unknown]
  - Dizziness [Unknown]
  - Paraesthesia [Recovered/Resolved]
